FAERS Safety Report 6766139-0 (Version None)
Quarter: 2010Q2

REPORT INFORMATION
  Report Type: 
  Country: None (occurrence: None)
  Receive Date: 20100611
  Receipt Date: 20100604
  Transmission Date: 20101027
  Serious: Yes (Other)
  Sender: FDA-Public Use
  Company Number: FI-PFIZER INC-2010070148

PATIENT
  Age: 29 Year
  Sex: Female

DRUGS (1)
  1. SYNAREL [Suspect]
     Dosage: 2 DOSES TWO TIMES DAILY: TOTAL 800 UG, 1X/DAY
     Route: 045
     Dates: start: 20100504, end: 20100101

REACTIONS (4)
  - ARRHYTHMIA [None]
  - INSOMNIA [None]
  - MALAISE [None]
  - SYNCOPE [None]
